FAERS Safety Report 10440807 (Version 1)
Quarter: 2014Q3

REPORT INFORMATION
  Report Type: Spontaneous
  Country: US (occurrence: None)
  Receive Date: 20140908
  Receipt Date: 20140908
  Transmission Date: 20150326
  Serious: Yes (Life-Threatening, Other)
  Sender: FDA-Public Use
  Company Number: None

PATIENT
  Age: 36 Year
  Sex: Female
  Weight: 78.47 kg

DRUGS (1)
  1. DULOXETINE 60 MG CITRON DISTRIBUTED MADE IN INDIA [Suspect]
     Active Substance: DULOXETINE
     Indication: DEPRESSION
     Dosage: 1 PILL
     Route: 048
     Dates: start: 20131201

REACTIONS (4)
  - Product substitution issue [None]
  - Suicidal ideation [None]
  - No therapeutic response [None]
  - Therapeutic response changed [None]

NARRATIVE: CASE EVENT DATE: 20140521
